FAERS Safety Report 4936612-6 (Version None)
Quarter: 2006Q1

REPORT INFORMATION
  Report Type: 
  Country: None (occurrence: None)
  Receive Date: 20060307
  Receipt Date: 20050406
  Transmission Date: 20060701
  Serious: Yes (Hospitalization, Disabling, Other)
  Sender: FDA-Public Use
  Company Number: US-MERCK-0504USA00828

PATIENT
  Sex: Male

DRUGS (2)
  1. VIOXX [Suspect]
     Indication: BACK PAIN
     Route: 048
  2. VIOXX [Suspect]
     Indication: HEADACHE
     Route: 048

REACTIONS (11)
  - ASTHENIA [None]
  - CHEST PAIN [None]
  - CHRONIC OBSTRUCTIVE PULMONARY DISEASE [None]
  - COGNITIVE DISORDER [None]
  - FEELING COLD [None]
  - GASTRIC DISORDER [None]
  - HEART RATE INCREASED [None]
  - PEPTIC ULCER HAEMORRHAGE [None]
  - PULMONARY EMBOLISM [None]
  - TRAUMATIC BRAIN INJURY [None]
  - VIRAL INFECTION [None]
